FAERS Safety Report 5252496-3 (Version None)
Quarter: 2007Q1

REPORT INFORMATION
  Report Type: 
  Country: None (occurrence: None)
  Receive Date: 20070301
  Receipt Date: 20061221
  Transmission Date: 20070707
  Serious: No
  Sender: FDA-Public Use
  Company Number: US-BRISTOL-MYERS SQUIBB COMPANY-13620588

PATIENT
  Age: 52 Year
  Sex: Female
  Weight: 53 kg

DRUGS (4)
  1. ERBITUX [Suspect]
     Indication: LARYNGEAL CANCER
  2. CARBOPLATIN [Concomitant]
  3. TAXOTERE [Concomitant]
  4. FLUOROURACIL [Concomitant]

REACTIONS (1)
  - INFUSION SITE REACTION [None]
